FAERS Safety Report 4462737-8 (Version None)
Quarter: 2004Q3

REPORT INFORMATION
  Report Type: 
  Country: None (occurrence: None)
  Receive Date: 20040930
  Receipt Date: 20040923
  Transmission Date: 20050211
  Serious: Yes (Other)
  Sender: FDA-Public Use
  Company Number: CA-JNJFOC-20040908149

PATIENT
  Sex: Female
  Weight: 54.43 kg

DRUGS (3)
  1. REMICADE [Suspect]
     Route: 042
  2. REMICADE [Suspect]
     Indication: RHEUMATOID ARTHRITIS
     Dosage: 14TH INFUSION
     Route: 042
  3. METHOTREXATE [Concomitant]

REACTIONS (9)
  - CHROMATURIA [None]
  - DRUG INEFFECTIVE [None]
  - DYSPHONIA [None]
  - DYSURIA [None]
  - FACIAL NEURALGIA [None]
  - PHARYNGITIS [None]
  - PHARYNGOLARYNGEAL PAIN [None]
  - STOMATITIS [None]
  - VULVAL ERYTHEMA [None]
